FAERS Safety Report 19271750 (Version 2)
Quarter: 2021Q2

REPORT INFORMATION
  Report Type: Spontaneous
  Country: CN (occurrence: CN)
  Receive Date: 20210519
  Receipt Date: 20210604
  Transmission Date: 20210717
  Serious: Yes (Hospitalization, Other)
  Sender: FDA-Public Use
  Company Number: CN-ACCORD-225650

PATIENT
  Age: 37 Year
  Sex: Male

DRUGS (1)
  1. CLOZAPINE. [Suspect]
     Active Substance: CLOZAPINE
     Indication: PRODUCT USED FOR UNKNOWN INDICATION
     Route: 048
     Dates: start: 20191012

REACTIONS (12)
  - Overdose [Unknown]
  - Acute kidney injury [Recovering/Resolving]
  - Irritability [Recovered/Resolved]
  - Rales [Recovering/Resolving]
  - Metabolic acidosis [Recovering/Resolving]
  - Heart rate increased [Recovering/Resolving]
  - Pupillary reflex impaired [Unknown]
  - Lactic acidosis [Recovering/Resolving]
  - Altered state of consciousness [Recovered/Resolved]
  - Dyspnoea [Recovering/Resolving]
  - Confusional state [Recovered/Resolved]
  - Tremor [Recovering/Resolving]

NARRATIVE: CASE EVENT DATE: 20191012
